FAERS Safety Report 9300374 (Version 1)
Quarter: 2013Q1

REPORT INFORMATION
  Report Type: Spontaneous
  Country: US (occurrence: None)
  Receive Date: 20130104
  Receipt Date: 20130104
  Transmission Date: 20140127
  Serious: Yes (Life-Threatening)
  Sender: FDA-Public Use
  Company Number: FK201202607

PATIENT
  Age: 74 Year
  Sex: Male

DRUGS (4)
  1. PROPOFOL (MANUFACTURER UNKNOWN) (PROPOFOL) (PROPOFOL) [Suspect]
     Indication: GENERAL ANAESTHESIA
     Route: 042
     Dates: start: 20120831, end: 20120831
  2. CEFAZOLIN FOR INJECTION INJECTION, USP (CEFAZOLIN SODIUM ) (CEFAZOLIN IN SODIUM) [Suspect]
     Indication: ANTIBIOTIC PROPHYLAXIS
     Route: 002
     Dates: start: 20120831, end: 20120831
  3. MIDAZOLAM (MIDAZOLAM) [Concomitant]
  4. FENTANYL (FENTANYL) [Concomitant]

REACTIONS (2)
  - Hypersensitivity [None]
  - Bronchospasm [None]
